FAERS Safety Report 20854155 (Version 2)
Quarter: 2022Q2

REPORT INFORMATION
  Report Type: Spontaneous
  Country: ES (occurrence: ES)
  Receive Date: 20220520
  Receipt Date: 20220525
  Transmission Date: 20220721
  Serious: Yes (Death, Hospitalization, Other)
  Sender: FDA-Public Use
  Company Number: ES-EXELIXIS-CABO-22052024

PATIENT
  Age: 47 Year
  Sex: Male
  Weight: 72 kg

DRUGS (7)
  1. CABOMETYX [Suspect]
     Active Substance: CABOZANTINIB S-MALATE
     Indication: Clear cell renal cell carcinoma
     Dosage: 60 MG, QD
     Dates: start: 20171124
  2. CABOMETYX [Suspect]
     Active Substance: CABOZANTINIB S-MALATE
     Dosage: 40 MG, QD
  3. CABOMETYX [Suspect]
     Active Substance: CABOZANTINIB S-MALATE
     Dosage: 20 MG, QD
     Dates: end: 20211123
  4. NIVOLUMAB [Suspect]
     Active Substance: NIVOLUMAB
     Indication: Clear cell renal cell carcinoma
     Dosage: UNK
  5. ZOMETA [Concomitant]
     Active Substance: ZOLEDRONIC ACID
     Dosage: UNK
     Dates: end: 20180401
  6. UNSPECIFIED INGREDIENT [Concomitant]
     Active Substance: UNSPECIFIED INGREDIENT
     Dosage: UNK
  7. MONSELS [Concomitant]
     Active Substance: FERRIC SUBSULFATE
     Dosage: UNK

REACTIONS (16)
  - Spinal cord compression [Unknown]
  - Cytomegalovirus infection [Unknown]
  - Myelopathy [Unknown]
  - Pathological fracture [Unknown]
  - Pneumonia [Unknown]
  - Malignant neoplasm progression [Fatal]
  - Osteonecrosis of jaw [Recovering/Resolving]
  - Diarrhoea [Recovering/Resolving]
  - Dermatitis psoriasiform [Recovering/Resolving]
  - Dysphagia [Recovering/Resolving]
  - Skin fissures [Unknown]
  - Hypertension [Recovering/Resolving]
  - Weight decreased [Unknown]
  - Skin haemorrhage [Unknown]
  - Therapy partial responder [Unknown]
  - Metastases to bone [Unknown]
